FAERS Safety Report 24650773 (Version 1)
Quarter: 2024Q4

REPORT INFORMATION
  Report Type: Other
  Country: JP (occurrence: JP)
  Receive Date: 20241122
  Receipt Date: 20241122
  Transmission Date: 20250115
  Serious: Yes (Death)
  Sender: ANI
  Company Number: JP-ANIPHARMA-012895

PATIENT
  Age: 15 Year
  Sex: Male

DRUGS (6)
  1. CYCLOPHOSPHAMIDE [Suspect]
     Active Substance: CYCLOPHOSPHAMIDE
     Indication: Small cell carcinoma
  2. VINCRISTINE [Concomitant]
     Active Substance: VINCRISTINE
     Indication: Small cell carcinoma
  3. DOXORUBICIN [Concomitant]
     Active Substance: DOXORUBICIN
     Indication: Small cell carcinoma
  4. IFOSFAMIDE [Concomitant]
     Active Substance: IFOSFAMIDE
     Indication: Small cell carcinoma
  5. ETOPOSIDE [Concomitant]
     Active Substance: ETOPOSIDE
     Indication: Small cell carcinoma
  6. PAZOPANIB [Concomitant]
     Active Substance: PAZOPANIB
     Indication: Small cell carcinoma

REACTIONS (1)
  - Drug ineffective [Fatal]
